FAERS Safety Report 25446853 (Version 1)
Quarter: 2025Q2

REPORT INFORMATION
  Report Type: Spontaneous
  Country: US (occurrence: US)
  Receive Date: 20250617
  Receipt Date: 20250617
  Transmission Date: 20250717
  Serious: No
  Sender: UCB
  Company Number: US-UCBSA-2025027213

PATIENT
  Age: 75 Year
  Sex: Female
  Weight: 67.755 kg

DRUGS (1)
  1. BIMZELX [Suspect]
     Active Substance: BIMEKIZUMAB-BKZX
     Indication: Psoriatic arthropathy
     Dosage: 320 MILLIGRAM, EV 4 WEEKS, AT WEEK 0, 4, 8, 12, 16, THEN EVERY 8 WEEKS THEREAFTER
     Route: 058
     Dates: start: 20250504

REACTIONS (2)
  - Injection site pain [Recovered/Resolved]
  - Product use issue [Unknown]

NARRATIVE: CASE EVENT DATE: 20250504
